FAERS Safety Report 5898872-7 (Version None)
Quarter: 2008Q3

REPORT INFORMATION
  Report Type: 
  Country: None (occurrence: None)
  Receive Date: 20080925
  Receipt Date: 20080917
  Transmission Date: 20090109
  Serious: Yes (Death)
  Sender: FDA-Public Use
  Company Number: US-BAXTER-2008BH009815

PATIENT
  Age: 77 Year
  Sex: Male

DRUGS (2)
  1. GAMMAGARD S/D [Suspect]
     Indication: IMMUNODEFICIENCY COMMON VARIABLE
     Dosage: DOSE UNIT:UNKNOWN
     Route: 065
  2. GAMMAGARD S/D [Suspect]
     Indication: MYELODYSPLASTIC SYNDROME
     Dosage: DOSE UNIT:UNKNOWN
     Route: 065

REACTIONS (1)
  - SEPSIS [None]
